FAERS Safety Report 16964681 (Version 1)
Quarter: 2019Q4

REPORT INFORMATION
  Report Type: Report from Study
  Country: US (occurrence: US)
  Receive Date: 20191028
  Receipt Date: 20191028
  Transmission Date: 20200122
  Serious: No
  Sender: FDA-Public Use
  Company Number: NVSC2019US014164

PATIENT

DRUGS (1)
  1. TREPROSTINIL. [Suspect]
     Active Substance: TREPROSTINIL
     Indication: PRODUCT USED FOR UNKNOWN INDICATION
     Route: 065

REACTIONS (4)
  - Dyspnoea [Unknown]
  - Headache [Unknown]
  - Diarrhoea [Unknown]
  - Nasal congestion [Unknown]
